FAERS Safety Report 10224860 (Version 2)
Quarter: 2014Q3

REPORT INFORMATION
  Report Type: Spontaneous
  Country: US (occurrence: US)
  Receive Date: 20140609
  Receipt Date: 20140721
  Transmission Date: 20150326
  Serious: Yes (Death)
  Sender: FDA-Public Use
  Company Number: US-GLAXOSMITHKLINE-A1076315A

PATIENT
  Age: 74 Year
  Sex: Female

DRUGS (1)
  1. VOTRIENT [Suspect]
     Active Substance: PAZOPANIB HYDROCHLORIDE
     Indication: BRONCHIAL CARCINOMA
     Dosage: 800MG PER DAY
     Route: 065
     Dates: start: 20140326

REACTIONS (3)
  - Metastases to central nervous system [Fatal]
  - Death [Fatal]
  - Renal cancer recurrent [Fatal]

NARRATIVE: CASE EVENT DATE: 20140529
